FAERS Safety Report 7153318-6 (Version None)
Quarter: 2010Q4

REPORT INFORMATION
  Report Type: 
  Country: None (occurrence: None)
  Receive Date: 20101213
  Receipt Date: 20101202
  Transmission Date: 20110411
  Serious: Yes (Hospitalization)
  Sender: FDA-Public Use
  Company Number: US-ELI_LILLY_AND_COMPANY-US201012002530

PATIENT
  Sex: Female
  Weight: 73.469 kg

DRUGS (9)
  1. PRASUGREL HYDROCHLORIDE [Suspect]
     Indication: ACUTE CORONARY SYNDROME
     Dosage: 60 MG, OTHER
     Route: 065
     Dates: start: 20100728
  2. PRASUGREL HYDROCHLORIDE [Suspect]
     Dosage: 10 MG, DAILY (1/D)
     Route: 065
     Dates: start: 20100729
  3. ASPIRIN [Concomitant]
     Dosage: 81 MG, UNKNOWN
     Route: 065
  4. ASPIRIN [Concomitant]
     Dosage: 325 MG, DAILY (1/D)
     Route: 065
     Dates: start: 20100628
  5. NORVASC [Concomitant]
     Indication: HYPERTENSION
     Dosage: 10 MG, DAILY (1/D)
     Route: 048
  6. PROTONIX [Concomitant]
     Indication: HYPERTENSION
     Dosage: 40 MG, DAILY (1/D)
     Route: 048
     Dates: start: 20100729
  7. ZOCOR [Concomitant]
     Indication: HYPERLIPIDAEMIA
     Dosage: 40 MG, DAILY (1/D)
     Route: 048
  8. ARIMIDEX [Concomitant]
     Indication: BREAST CANCER
     Dosage: 1 MG, DAILY (1/D)
     Route: 048
  9. ZOLOFT [Concomitant]
     Indication: ANTIDEPRESSANT THERAPY
     Dosage: 50 MG, DAILY (1/D)
     Route: 048

REACTIONS (1)
  - ANGINA PECTORIS [None]
